FAERS Safety Report 4339321-X (Version None)
Quarter: 2004Q2

REPORT INFORMATION
  Report Type: 
  Country: None (occurrence: None)
  Receive Date: 20040412
  Receipt Date: 19961031
  Transmission Date: 20050107
  Serious: Yes (Death, Life-Threatening, Hospitalization)
  Sender: FDA-Public Use
  Company Number: WAES 96120499

PATIENT
  Age: 4 Day
  Sex: Female

DRUGS (4)
  1. INDOCIN I.V. [Suspect]
     Indication: PATENT DUCTUS ARTERIOSUS
     Dosage: 0.2 MG/KG/DAILY, IV
     Route: 042
     Dates: start: 19960812, end: 19960812
  2. AMPICILLIN/CLOXACILLIN [Concomitant]
  3. ASSISTED VENTILATION [Concomitant]
     Route: 055
  4. COFETAXIME NA [Concomitant]

REACTIONS (5)
  - DRUG INEFFECTIVE [None]
  - OLIGURIA [None]
  - PULMONARY HAEMORRHAGE [None]
  - RESPIRATORY FAILURE [None]
  - WEIGHT INCREASED [None]
